FAERS Safety Report 10177303 (Version 2)
Quarter: 2014Q2

REPORT INFORMATION
  Report Type: Spontaneous
  Country: JP (occurrence: JP)
  Receive Date: 20140516
  Receipt Date: 20140620
  Transmission Date: 20141212
  Serious: Yes (Hospitalization)
  Sender: FDA-Public Use
  Company Number: JP-GLAXOSMITHKLINE-B0994495A

PATIENT
  Age: 73 Year
  Sex: Female

DRUGS (10)
  1. ZANTAC [Suspect]
     Indication: ANAESTHETIC PREMEDICATION
     Dosage: 50MG PER DAY
     Dates: start: 20140501, end: 20140501
  2. FUROSEMIDE [Concomitant]
     Route: 065
  3. TAKEPRON [Concomitant]
     Route: 048
  4. ARTIST [Concomitant]
     Route: 048
  5. BAYASPIRIN [Concomitant]
     Route: 048
  6. ARGAMATE [Concomitant]
     Route: 048
  7. CALTAN [Concomitant]
     Route: 048
  8. PRIMPERAN [Concomitant]
     Route: 065
  9. FOSRENOL [Concomitant]
     Route: 048
  10. NU-LOTAN [Concomitant]
     Route: 048

REACTIONS (7)
  - Anaphylactic reaction [Recovered/Resolved]
  - Feeling abnormal [Recovered/Resolved]
  - Nausea [Recovered/Resolved]
  - Vomiting [Recovered/Resolved]
  - Diarrhoea [Recovered/Resolved]
  - Cough [Recovered/Resolved]
  - Blood pressure decreased [Recovered/Resolved]
